FAERS Safety Report 6190792-6 (Version None)
Quarter: 2009Q2

REPORT INFORMATION
  Report Type: 
  Country: None (occurrence: None)
  Receive Date: 20090514
  Receipt Date: 20090508
  Transmission Date: 20091009
  Serious: Yes (Hospitalization, Other)
  Sender: FDA-Public Use
  Company Number: US-ELI_LILLY_AND_COMPANY-US200905001587

PATIENT
  Sex: Male

DRUGS (9)
  1. FORTEO [Suspect]
     Indication: BONE DISORDER
     Dosage: 20 UG, DAILY (1/D)
     Dates: start: 20090201
  2. GLUCOPHAGE [Concomitant]
  3. CRESTOR [Concomitant]
  4. TRICOR [Concomitant]
  5. LEXAPRO [Concomitant]
  6. ACIPHEX [Concomitant]
  7. HYDROCHLOROTHIAZIDE [Concomitant]
  8. VITAMIN D [Concomitant]
  9. FLOMAX [Concomitant]

REACTIONS (2)
  - NEPHROLITHIASIS [None]
  - OESOPHAGOGASTRIC FUNDOPLASTY [None]
